FAERS Safety Report 15584578 (Version 1)
Quarter: 2018Q4

REPORT INFORMATION
  Report Type: Report from Study
  Country: DE (occurrence: DE)
  Receive Date: 20181102
  Receipt Date: 20181102
  Transmission Date: 20190205
  Serious: Yes (Life-Threatening)
  Sender: FDA-Public Use
  Company Number: DE-BAYER-RCH-221817

PATIENT
  Age: 75 Year
  Sex: Female
  Weight: 69 kg

DRUGS (50)
  1. PHENHYDAN [Suspect]
     Active Substance: PHENYTOIN
     Indication: PROPHYLAXIS
     Route: 042
     Dates: start: 19981120, end: 19981120
  2. NOVALGIN (METAMIZOLE SODIUM) [Suspect]
     Active Substance: METAMIZOLE SODIUM
     Indication: PYREXIA
     Dosage: 20 GTT (DAILY DOSE), , ORAL
     Route: 048
     Dates: start: 19981202, end: 19981202
  3. PASPERTIN [METOCLOPRAMIDE HYDROCHLORIDE] [Concomitant]
     Active Substance: METOCLOPRAMIDE HYDROCHLORIDE
     Indication: NAUSEA
     Dosage: 25 GTT (DAILY DOSE), , ORAL
     Route: 048
     Dates: start: 19981119, end: 19981119
  4. EBRANTIL [Concomitant]
     Active Substance: URAPIDIL
     Indication: HYPERTENSION
     Dosage: 110 MG (DAILY DOSE), , INTRAVENOUS
     Route: 042
     Dates: start: 19981120, end: 19981120
  5. FENTANYL JANSSEN-CILAG PH [Concomitant]
     Indication: GENERAL ANAESTHESIA
     Dosage: .25 MG (DAILY DOSE), , INTRAVENOUS
     Route: 042
     Dates: start: 19981120, end: 19981120
  6. THIOPENTAL [Concomitant]
     Active Substance: THIOPENTAL
     Indication: GENERAL ANAESTHESIA
     Dosage: 400 MG (DAILY DOSE), , INTRAVENOUS
     Route: 042
     Dates: start: 19981120, end: 19981120
  7. MIDAZOLAM [Suspect]
     Active Substance: MIDAZOLAM HYDROCHLORIDE
     Indication: SEDATION
     Dosage: 40 MG (DAILY DOSE), , INTRAVENOUS
     Route: 042
     Dates: start: 19981120, end: 19981120
  8. VESDIL [Suspect]
     Active Substance: RAMIPRIL
     Indication: HYPERTENSION
     Route: 048
     Dates: start: 19981122
  9. SILOMAT [CLOBUTINOL HYDROCHLORIDE] [Suspect]
     Active Substance: CLOBUTINOL HYDROCHLORIDE
     Indication: COUGH
     Dosage: 20 GTT (DAILY DOSE), , ORAL
     Route: 048
     Dates: start: 19981124, end: 19981124
  10. PASPERTIN [METOCLOPRAMIDE HYDROCHLORIDE] [Concomitant]
     Active Substance: METOCLOPRAMIDE HYDROCHLORIDE
     Indication: NAUSEA
     Route: 042
     Dates: start: 19981120, end: 19981120
  11. PANCURONIUM [Concomitant]
     Active Substance: PANCURONIUM
     Indication: GENERAL ANAESTHESIA
     Dosage: 6 MG (DAILY DOSE), , INTRAVENOUS
     Route: 042
     Dates: start: 19981120, end: 19981120
  12. DEXPANTHENOL. [Suspect]
     Active Substance: DEXPANTHENOL
     Dosage: DAILY DOSE 3 DF
     Route: 048
     Dates: start: 19981121, end: 19981203
  13. ASPIRIN 100 MG [Suspect]
     Active Substance: ASPIRIN
     Indication: CORONARY ARTERY DISEASE
     Route: 048
     Dates: end: 19981116
  14. ACC [ACETYLCYSTEINE] [Suspect]
     Active Substance: ACETYLCYSTEINE
     Indication: PRODUCT USED FOR UNKNOWN INDICATION
     Route: 048
     Dates: start: 19981202
  15. PHENAEMAL [Suspect]
     Active Substance: PHENOBARBITAL
     Indication: PROPHYLAXIS
     Route: 048
     Dates: start: 19981001, end: 19981115
  16. SILOMAT [CLOBUTINOL HYDROCHLORIDE] [Suspect]
     Active Substance: CLOBUTINOL HYDROCHLORIDE
     Indication: COUGH
     Dosage: 20 GTT (DAILY DOSE), , ORAL
     Route: 048
     Dates: start: 19981128, end: 19981128
  17. HEPARIN [Concomitant]
     Active Substance: HEPARIN SODIUM
     Indication: THROMBOSIS PROPHYLAXIS
     Route: 042
     Dates: start: 19981120, end: 19981122
  18. RINGERS SOLUTION [Concomitant]
     Active Substance: CALCIUM CHLORIDE\POTASSIUM CHLORIDE\SODIUM CHLORIDE
     Indication: FLUID REPLACEMENT
     Route: 042
     Dates: start: 19981120, end: 19981120
  19. KALIUMKLORID [Concomitant]
     Indication: HYPOKALAEMIA
     Route: 042
     Dates: start: 19981120, end: 19981122
  20. NITRAZEPAM [Suspect]
     Active Substance: NITRAZEPAM
     Indication: SEDATION
     Route: 048
     Dates: start: 19981119, end: 19981207
  21. FORTECORTIN [DEXAMETHASONE] [Concomitant]
     Indication: PROPHYLAXIS
     Route: 042
     Dates: start: 19981120, end: 19981121
  22. SODIUM CHLORIDE. [Concomitant]
     Active Substance: SODIUM CHLORIDE
     Indication: FLUID REPLACEMENT
     Dosage: 548 ML (DAILY DOSE), , INTRAVENOUS
     Route: 042
     Dates: start: 19981120, end: 19981122
  23. MAGALDRATE [Suspect]
     Active Substance: MAGALDRATE
     Indication: ULCER
     Route: 048
     Dates: start: 19981128
  24. DEXAMETHASONE [DEXAMETHASONE] [Concomitant]
     Indication: PROPHYLAXIS
     Dosage: 8 MG (DAILY DOSE), , ORAL
     Route: 048
     Dates: start: 19981116, end: 19981128
  25. GLUCOSE [Concomitant]
     Active Substance: DEXTROSE
     Indication: FLUID REPLACEMENT
     Dosage: 500 ML (DAILY DOSE), , INTRAVENOUS
     Route: 042
     Dates: start: 19981120, end: 19981122
  26. DEXPANTHENOL. [Suspect]
     Active Substance: DEXPANTHENOL
     Dosage: DAILY DOSE 3 DF
     Route: 048
     Dates: start: 19981207
  27. DIAZEPAM. [Suspect]
     Active Substance: DIAZEPAM
     Indication: SEDATION
     Dosage: 5 MG (DAILY DOSE), , ORAL
     Route: 048
     Dates: start: 19981119, end: 19981119
  28. PHENHYDAN [Suspect]
     Active Substance: PHENYTOIN
     Indication: PROPHYLAXIS
     Dosage: 100 MG (DAILY DOSE), , ORAL
     Route: 048
     Dates: start: 19981121
  29. CODEINE [Suspect]
     Active Substance: CODEINE
     Indication: COUGH
     Route: 048
     Dates: start: 19981204
  30. DILZEM - SLOW RELEASE [Concomitant]
     Active Substance: DILTIAZEM HYDROCHLORIDE
     Indication: CORONARY ARTERY DISEASE
     Route: 048
  31. HEPARIN [Concomitant]
     Active Substance: HEPARIN SODIUM
     Indication: THROMBOSIS PROPHYLAXIS
     Route: 058
     Dates: start: 19981116
  32. RANITIDINE. [Concomitant]
     Active Substance: RANITIDINE
     Indication: ULCER
     Route: 042
     Dates: start: 19981120, end: 19981121
  33. ISOFLURANE. [Concomitant]
     Active Substance: ISOFLURANE
     Indication: GENERAL ANAESTHESIA
     Dosage: .4 % (DAILY DOSE), , RESPIRATORY
     Route: 055
     Dates: start: 19981120, end: 19981120
  34. FLUIMUCIL [Concomitant]
     Active Substance: ACETYLCYSTEINE
     Indication: PRODUCT USED FOR UNKNOWN INDICATION
     Route: 042
     Dates: start: 19981120, end: 19981122
  35. ADALAT [Concomitant]
     Active Substance: NIFEDIPINE
     Indication: HYPERTENSION
     Route: 048
     Dates: start: 19981121, end: 19981121
  36. MIDAZOLAM [Suspect]
     Active Substance: MIDAZOLAM HYDROCHLORIDE
     Indication: SEDATION
     Dosage: 7.5 MG (DAILY DOSE), , ORAL
     Route: 048
     Dates: start: 19981119, end: 19981119
  37. VESDIL [Suspect]
     Active Substance: RAMIPRIL
     Indication: HYPERTENSION
     Route: 048
     Dates: end: 19981119
  38. PHENHYDAN [Suspect]
     Active Substance: PHENYTOIN
     Indication: PROPHYLAXIS
     Dosage: 100 MG (DAILY DOSE), , ORAL
     Route: 048
     Dates: start: 19981116, end: 19981119
  39. SILOMAT [CLOBUTINOL HYDROCHLORIDE] [Suspect]
     Active Substance: CLOBUTINOL HYDROCHLORIDE
     Indication: COUGH
     Dosage: 20 GTT (DAILY DOSE), , ORAL
     Route: 048
     Dates: start: 19981130, end: 19981205
  40. RANITIDINE. [Concomitant]
     Active Substance: RANITIDINE
     Indication: ULCER
     Route: 048
     Dates: start: 19981116
  41. DOPAMIN [DOPAMINE HYDROCHLORIDE] [Concomitant]
     Route: 042
     Dates: start: 19981120, end: 19981120
  42. SOSTRIL [Concomitant]
     Active Substance: RANITIDINE HYDROCHLORIDE
     Indication: ULCER
     Route: 042
     Dates: start: 19981120, end: 19981120
  43. SUFENTA [Concomitant]
     Active Substance: SUFENTANIL CITRATE
     Indication: GENERAL ANAESTHESIA
     Dosage: 5 ML (DAILY DOSE), , INTRAVENOUS
     Route: 042
     Dates: start: 19981120, end: 19981120
  44. ATROPIN [Concomitant]
     Active Substance: ATROPINE
     Indication: ARRHYTHMIA
     Dosage: .5 MG (DAILY DOSE), , INTRAVENOUS
     Route: 042
     Dates: start: 19981120, end: 19981120
  45. KALINOR-BRAUSETABLETTEN [Concomitant]
     Active Substance: POTASSIUM CARBONATE\POTASSIUM CITRATE
     Indication: HYPOKALAEMIA
     Route: 048
     Dates: start: 19981121, end: 19981122
  46. MEVINACOR [Concomitant]
     Active Substance: LOVASTATIN
     Indication: HYPERCHOLESTEROLAEMIA
     Route: 048
     Dates: start: 19981116
  47. ARISTOCHOL KONZENTRAT [Concomitant]
     Active Substance: DIETARY SUPPLEMENT\HERBALS
     Indication: CONSTIPATION
     Route: 048
     Dates: start: 19981116
  48. DEPOT-H-INSULIN [Concomitant]
     Indication: HYPERGLYCAEMIA
     Dosage: 8 IU (DAILY DOSE), , SUBCUTANEOUS
     Route: 058
     Dates: start: 19981120, end: 19981120
  49. GASTROZEPIN [Concomitant]
     Active Substance: PIRENZEPINE HYDROCHLORIDE
     Indication: ULCER
     Route: 042
     Dates: start: 19981120, end: 19981120
  50. DEHYDROBENZPERIDOL [Concomitant]
     Active Substance: DROPERIDOL
     Indication: GENERAL ANAESTHESIA
     Dosage: 1.25 MG (DAILY DOSE), , INTRAVENOUS
     Route: 042
     Dates: start: 19981120, end: 19981120

REACTIONS (1)
  - Stevens-Johnson syndrome [Recovering/Resolving]

NARRATIVE: CASE EVENT DATE: 19981207
